FAERS Safety Report 13416029 (Version 4)
Quarter: 2018Q1

REPORT INFORMATION
  Report Type: Report from Study
  Country: DE (occurrence: DE)
  Receive Date: 20170407
  Receipt Date: 20180316
  Transmission Date: 20180508
  Serious: Yes (Life-Threatening, Hospitalization)
  Sender: FDA-Public Use
  Company Number: DE-JNJFOC-20170405601

PATIENT
  Age: 71 Year
  Sex: Female

DRUGS (42)
  1. HEPARIN [Concomitant]
     Active Substance: HEPARIN SODIUM
     Route: 042
     Dates: start: 20170330, end: 20170330
  2. BISACODYL. [Concomitant]
     Active Substance: BISACODYL
     Route: 065
     Dates: start: 20170329, end: 20170329
  3. HEPARIN [Concomitant]
     Active Substance: HEPARIN SODIUM
     Dosage: 0-0-1
     Route: 065
     Dates: start: 20170403, end: 20170403
  4. GELAFUNDIN [Concomitant]
     Active Substance: CALCIUM CHLORIDE\GELATIN\SODIUM CHLORIDE
     Dosage: 1-0-0
     Route: 065
     Dates: end: 20170330
  5. LINSEED OIL [Concomitant]
     Active Substance: LINSEED OIL
     Route: 065
     Dates: start: 20170329, end: 20170329
  6. LACTULOSE. [Concomitant]
     Active Substance: LACTULOSE
     Route: 065
     Dates: start: 20170329, end: 20170329
  7. HEPARIN [Concomitant]
     Active Substance: HEPARIN SODIUM
     Route: 065
     Dates: start: 20170402, end: 20170402
  8. PROPOFOL. [Concomitant]
     Active Substance: PROPOFOL
     Route: 065
  9. HEPARIN [Concomitant]
     Active Substance: HEPARIN SODIUM
     Route: 042
     Dates: start: 20170329, end: 20170329
  10. INSULIN [Concomitant]
     Active Substance: INSULIN NOS
     Route: 065
  11. FIBRINOGEN [Concomitant]
     Active Substance: FIBRINOGEN HUMAN
     Route: 065
  12. SUFENTANIL [Concomitant]
     Active Substance: SUFENTANIL
     Route: 065
  13. KALIUMCHLORID [Concomitant]
     Route: 065
  14. CYKLOKAPRON [Concomitant]
     Active Substance: TRANEXAMIC ACID
     Route: 065
  15. PPSB [Concomitant]
     Route: 065
  16. FRESUBIN [Concomitant]
     Active Substance: AMINO ACIDS\DEXTROSE\ELECTROLYTES NOS\SOYBEAN OIL\VITAMINS
     Route: 065
     Dates: start: 20170329, end: 20170329
  17. VITAMINE C [Concomitant]
     Active Substance: ASCORBIC ACID
     Dosage: 0-1-0
     Route: 065
  18. HEPARIN [Concomitant]
     Active Substance: HEPARIN SODIUM
     Route: 042
     Dates: start: 20170330, end: 20170331
  19. HEPARIN [Concomitant]
     Active Substance: HEPARIN SODIUM
     Route: 042
     Dates: start: 20170331, end: 20170331
  20. KALIUMCHLORID [Concomitant]
     Route: 065
  21. CASTOR OIL. [Concomitant]
     Active Substance: CASTOR OIL
     Route: 065
     Dates: start: 20170329, end: 20170329
  22. SALBUTAMOL [Concomitant]
     Active Substance: ALBUTEROL
     Route: 065
     Dates: start: 20170328, end: 20170329
  23. TACHOLIQUIN [Concomitant]
     Route: 065
     Dates: start: 20170328, end: 20170329
  24. HUMANALBUMIN [Concomitant]
     Active Substance: ALBUMIN HUMAN
     Route: 065
     Dates: start: 20170329, end: 20170329
  25. HEPARIN [Concomitant]
     Active Substance: HEPARIN SODIUM
     Dosage: 1-0-0
     Route: 065
     Dates: start: 20170403, end: 20170403
  26. XARELTO [Suspect]
     Active Substance: RIVAROXABAN
     Indication: ATRIAL FIBRILLATION
     Route: 048
     Dates: start: 201412, end: 20170328
  27. HEPARIN [Concomitant]
     Active Substance: HEPARIN SODIUM
     Route: 042
     Dates: start: 20170401, end: 20170401
  28. HEPARIN [Concomitant]
     Active Substance: HEPARIN SODIUM
     Route: 042
     Dates: start: 20170330, end: 20170330
  29. ATROPINE. [Concomitant]
     Active Substance: ATROPINE
     Route: 065
  30. PANTOPRAZOLE [Concomitant]
     Active Substance: PANTOPRAZOLE
     Route: 065
  31. BISOPROLOL FUMARATE. [Concomitant]
     Active Substance: BISOPROLOL FUMARATE
     Route: 065
  32. STEROFUNDIN [Concomitant]
     Active Substance: CALCIUM CHLORIDE\MAGNESIUM CHLORIDE\POTASSIUM CHLORIDE\SODIUM ACETATE\SODIUM CHLORIDE
     Route: 065
     Dates: start: 20170328, end: 20170329
  33. HEPARIN [Concomitant]
     Active Substance: HEPARIN SODIUM
     Dosage: 0-0-1
     Route: 065
     Dates: start: 20170401, end: 20170401
  34. HEPARIN [Concomitant]
     Active Substance: HEPARIN SODIUM
     Route: 065
     Dates: start: 20170404, end: 20170404
  35. HEPARIN [Concomitant]
     Active Substance: HEPARIN SODIUM
     Dosage: 0-0-1
     Route: 065
     Dates: start: 20170406, end: 20170406
  36. SUFENTANIL [Concomitant]
     Active Substance: SUFENTANIL
     Route: 065
  37. HEPARIN [Concomitant]
     Active Substance: HEPARIN SODIUM
     Route: 042
     Dates: start: 20170331, end: 20170401
  38. HEPARIN [Concomitant]
     Active Substance: HEPARIN SODIUM
     Route: 042
     Dates: start: 20170401, end: 20170401
  39. HEPARIN [Concomitant]
     Active Substance: HEPARIN SODIUM
     Route: 042
     Dates: start: 20170331
  40. SUFENTANIL [Concomitant]
     Active Substance: SUFENTANIL
     Route: 065
  41. MAGNESIUM [Concomitant]
     Active Substance: MAGNESIUM
     Route: 042
  42. HEPARIN [Concomitant]
     Active Substance: HEPARIN SODIUM
     Dosage: 1-0-0
     Route: 065
     Dates: start: 20170405, end: 20170406

REACTIONS (5)
  - Traumatic haemothorax [Not Recovered/Not Resolved]
  - Fall [Not Recovered/Not Resolved]
  - Spinal cord haemorrhage [Not Recovered/Not Resolved]
  - Procedural haemorrhage [Not Recovered/Not Resolved]
  - Thoracic haemorrhage [Not Recovered/Not Resolved]

NARRATIVE: CASE EVENT DATE: 20170328
